FAERS Safety Report 21402753 (Version 1)
Quarter: 2022Q4

REPORT INFORMATION
  Report Type: Spontaneous
  Country: US (occurrence: US)
  Receive Date: 20221003
  Receipt Date: 20221003
  Transmission Date: 20230112
  Serious: No
  Sender: FDA-Public Use
  Company Number: US-ELI_LILLY_AND_COMPANY-US202209011695

PATIENT
  Sex: Female

DRUGS (3)
  1. TRULICITY [Suspect]
     Active Substance: DULAGLUTIDE
     Indication: Product used for unknown indication
     Dosage: 3 MG, UNKNOWN
     Route: 065
     Dates: end: 202208
  2. TIRZEPATIDE [Concomitant]
     Active Substance: TIRZEPATIDE
     Indication: Glucose tolerance impaired
     Dosage: 2.5 MG, UNKNOWN
     Route: 065
  3. TIRZEPATIDE [Concomitant]
     Active Substance: TIRZEPATIDE
     Indication: Weight decreased

REACTIONS (3)
  - Eructation [Recovered/Resolved]
  - Nausea [Recovered/Resolved]
  - Inappropriate schedule of product administration [Unknown]
